FAERS Safety Report 6088742-6 (Version None)
Quarter: 2009Q1

REPORT INFORMATION
  Report Type: 
  Country: None (occurrence: None)
  Receive Date: 20090218
  Receipt Date: 20090218
  Transmission Date: 20090719
  Serious: No
  Sender: FDA-Public Use
  Company Number: None

PATIENT
  Age: 42 Year
  Sex: Male
  Weight: 80.7403 kg

DRUGS (2)
  1. REMICADE [Suspect]
     Indication: CROHN'S DISEASE
     Dosage: 10 MG/KG EVERY FOUR WEEKS IV
     Route: 042
     Dates: start: 20060501, end: 20080101
  2. REMICADE [Suspect]
     Indication: CROHN'S DISEASE
     Dosage: 10 MG/KG EVERY FOUR WEEKS IV
     Route: 042
     Dates: start: 20080601, end: 20081101

REACTIONS (4)
  - DYSPHAGIA [None]
  - MOTOR NEURONE DISEASE [None]
  - MUSCULOSKELETAL DISORDER [None]
  - SPEECH DISORDER [None]
